FAERS Safety Report 5518097-4 (Version None)
Quarter: 2007Q4

REPORT INFORMATION
  Report Type: 
  Country: None (occurrence: None)
  Receive Date: 20071113
  Receipt Date: 20071107
  Transmission Date: 20080405
  Serious: Yes (Death)
  Sender: FDA-Public Use
  Company Number: 2007-164577-NL

PATIENT
  Age: 40 Year
  Sex: Female

DRUGS (17)
  1. VECURONIUM BROMIDE [Suspect]
     Indication: DRUG THERAPY
     Dosage: 6 MG ONCE/NI/8 MG ONCE; INTRAVENOUS BOLUS/INTRAVENOUS DRIP/INTRAVENOUS BOLUS
     Route: 040
     Dates: start: 20070901, end: 20070901
  2. VECURONIUM BROMIDE [Suspect]
     Indication: INDUCTION AND MAINTENANCE OF ANAESTHESIA
     Dosage: 6 MG ONCE/NI/8 MG ONCE; INTRAVENOUS BOLUS/INTRAVENOUS DRIP/INTRAVENOUS BOLUS
     Route: 040
     Dates: start: 20070901, end: 20070901
  3. VECURONIUM BROMIDE [Suspect]
     Indication: DRUG THERAPY
     Dosage: 6 MG ONCE/NI/8 MG ONCE; INTRAVENOUS BOLUS/INTRAVENOUS DRIP/INTRAVENOUS BOLUS
     Route: 040
     Dates: start: 20070910, end: 20070910
  4. VECURONIUM BROMIDE [Suspect]
     Indication: INDUCTION AND MAINTENANCE OF ANAESTHESIA
     Dosage: 6 MG ONCE/NI/8 MG ONCE; INTRAVENOUS BOLUS/INTRAVENOUS DRIP/INTRAVENOUS BOLUS
     Route: 040
     Dates: start: 20070910, end: 20070910
  5. VECURONIUM BROMIDE [Suspect]
     Indication: DRUG THERAPY
     Dosage: 6 MG ONCE/NI/8 MG ONCE; INTRAVENOUS BOLUS/INTRAVENOUS DRIP/INTRAVENOUS BOLUS
     Route: 040
     Dates: start: 20070910, end: 20070910
  6. VECURONIUM BROMIDE [Suspect]
     Indication: INDUCTION AND MAINTENANCE OF ANAESTHESIA
     Dosage: 6 MG ONCE/NI/8 MG ONCE; INTRAVENOUS BOLUS/INTRAVENOUS DRIP/INTRAVENOUS BOLUS
     Route: 040
     Dates: start: 20070910, end: 20070910
  7. PROPOFOL [Concomitant]
  8. FENTANYL [Concomitant]
  9. TRAMADOL HCL [Concomitant]
  10. ONDANSETRON [Concomitant]
  11. ISOFLURANE [Concomitant]
  12. NITROUS OXIDE [Concomitant]
  13. OXYGEN [Concomitant]
  14. RANITIDINE HCL [Concomitant]
  15. DEXAMETHASONE [Concomitant]
  16. PHENYTOIN [Concomitant]
  17. THIOPENTAL SODIUM [Concomitant]

REACTIONS (6)
  - ANAESTHETIC COMPLICATION [None]
  - ANAESTHETIC COMPLICATION NEUROLOGICAL [None]
  - BLOOD PRESSURE DECREASED [None]
  - BLOOD PRESSURE INCREASED [None]
  - BRAIN OEDEMA [None]
  - MOUTH HAEMORRHAGE [None]
